FAERS Safety Report 8089639-2 (Version None)
Quarter: 2012Q1

REPORT INFORMATION
  Report Type: 
  Country: None (occurrence: None)
  Receive Date: 20120128
  Receipt Date: 20110629
  Transmission Date: 20120608
  Serious: Yes (Other)
  Sender: FDA-Public Use
  Company Number: US-ABBOTT-11P-163-0727952-00

PATIENT
  Sex: Female
  Weight: 65.83 kg

DRUGS (7)
  1. FLONASE [Concomitant]
     Indication: SINUS DISORDER
  2. HUMIRA [Suspect]
     Indication: PSORIATIC ARTHROPATHY
  3. CELEBREX [Concomitant]
     Indication: ARTHRITIS
  4. HUMIRA [Suspect]
     Indication: CROHN'S DISEASE
  5. HUMIRA [Suspect]
     Indication: PSORIASIS
     Dates: start: 20080422
  6. DOVONEX LIQUID [Concomitant]
     Indication: PSORIASIS
  7. DUVONEX CREAM [Concomitant]
     Indication: PSORIASIS

REACTIONS (6)
  - SINUS DISORDER [None]
  - ABDOMINAL DISTENSION [None]
  - VITAMIN D DECREASED [None]
  - FLATULENCE [None]
  - DIARRHOEA [None]
  - CROHN'S DISEASE [None]
